FAERS Safety Report 14195297 (Version 1)
Quarter: 2017Q4

REPORT INFORMATION
  Report Type: Spontaneous
  Country: US (occurrence: US)
  Receive Date: 20171116
  Receipt Date: 20171116
  Transmission Date: 20180321
  Serious: Yes (Other)
  Sender: FDA-Public Use
  Company Number: US-SA-2017SA223023

PATIENT
  Age: 67 Year
  Sex: Male

DRUGS (2)
  1. RENVELA [Suspect]
     Active Substance: SEVELAMER CARBONATE
     Indication: BLOOD PHOSPHORUS
     Route: 048
     Dates: start: 20170426
  2. PHOSLO [Concomitant]
     Active Substance: CALCIUM ACETATE
     Route: 065
     Dates: end: 20170425

REACTIONS (1)
  - Pneumonia aspiration [Not Recovered/Not Resolved]

NARRATIVE: CASE EVENT DATE: 2017
